FAERS Safety Report 16081338 (Version 1)
Quarter: 2019Q1

REPORT INFORMATION
  Report Type: Other
  Country: GB (occurrence: GB)
  Receive Date: 20190316
  Receipt Date: 20190316
  Transmission Date: 20190418
  Serious: Yes (Other)
  Sender: FDA-Public Use
  Company Number: GB-AUROBINDO-08-AUR-03055

PATIENT

DRUGS (2)
  1. CHAMPIX [Interacting]
     Active Substance: VARENICLINE TARTRATE
     Indication: SMOKING CESSATION THERAPY
     Dosage: 1 MG,ONCE A DAY,
     Route: 048
     Dates: end: 20080115
  2. CITALOPRAM FILM-COATED TABLETS 10MG [Suspect]
     Active Substance: CITALOPRAM HYDROBROMIDE
     Indication: PRODUCT USED FOR UNKNOWN INDICATION
     Dosage: UNK UNK,UNK,
     Route: 048

REACTIONS (4)
  - Aggression [Recovered/Resolved]
  - Mania [Recovered/Resolved]
  - Hypomania [Recovered/Resolved]
  - Drug interaction [Recovered/Resolved]
